FAERS Safety Report 5291451-4 (Version None)
Quarter: 2007Q2

REPORT INFORMATION
  Report Type: 
  Country: None (occurrence: None)
  Receive Date: 20070403
  Receipt Date: 20070322
  Transmission Date: 20071010
  Serious: Yes (Death, Life-Threatening, Hospitalization)
  Sender: FDA-Public Use
  Company Number: CLOF-10482

PATIENT
  Age: 24 Year
  Sex: Female
  Weight: 101.4 kg

DRUGS (2)
  1. CLOFARABINE [Suspect]
     Indication: ACUTE LYMPHOCYTIC LEUKAEMIA
     Dosage: 82.8 MG DAILY IV
     Route: 042
     Dates: start: 20070202, end: 20070206
  2. CYTARABINE [Suspect]
     Indication: ACUTE LYMPHOCYTIC LEUKAEMIA
     Dosage: 2070 MG DAILY IV
     Route: 042
     Dates: start: 20070202, end: 20070206

REACTIONS (7)
  - ACINETOBACTER BACTERAEMIA [None]
  - ACUTE RESPIRATORY DISTRESS SYNDROME [None]
  - HAEMORRHAGE [None]
  - PLEURAL EFFUSION [None]
  - PULMONARY OEDEMA [None]
  - SEPSIS [None]
  - SERRATIA SEPSIS [None]
